FAERS Safety Report 14978330 (Version 1)
Quarter: 2018Q2

REPORT INFORMATION
  Report Type: Report from Study
  Country: None (occurrence: AR)
  Receive Date: 20180606
  Receipt Date: 20180606
  Transmission Date: 20180711
  Serious: Yes (Hospitalization)
  Sender: FDA-Public Use
  Company Number: AR-ABBVIE-18K-007-2378539-00

PATIENT
  Age: 79 Year
  Sex: Female

DRUGS (1)
  1. HUMIRA [Suspect]
     Active Substance: ADALIMUMAB
     Indication: RHEUMATOID ARTHRITIS
     Route: 058
     Dates: start: 20111101

REACTIONS (4)
  - Dialysis [Recovering/Resolving]
  - Localised infection [Recovering/Resolving]
  - Dialysis related complication [Recovering/Resolving]
  - Peripheral artery occlusion [Recovering/Resolving]

NARRATIVE: CASE EVENT DATE: 2018
